FAERS Safety Report 23116513 (Version 1)
Quarter: 2023Q4

REPORT INFORMATION
  Report Type: Spontaneous
  Country: US (occurrence: None)
  Receive Date: 20231026
  Receipt Date: 20231026
  Transmission Date: 20240109
  Serious: Yes (Hospitalization)
  Sender: FDA-Public Use
  Company Number: None

PATIENT
  Sex: Female

DRUGS (2)
  1. OCTREOTIDE [Suspect]
     Active Substance: OCTREOTIDE
     Dosage: OTHER QUANTITY : 100 MCG/ML;?FREQUENCY : DAILY;?
     Route: 058
     Dates: start: 20230310
  2. OCTREOTIDE [Suspect]
     Active Substance: OCTREOTIDE
     Dosage: FREQUENCY : DAILY;?
     Route: 058

REACTIONS (1)
  - Dehydration [None]
